FAERS Safety Report 25353265 (Version 1)
Quarter: 2025Q2

REPORT INFORMATION
  Report Type: Spontaneous
  Country: US (occurrence: US)
  Receive Date: 20250523
  Receipt Date: 20250523
  Transmission Date: 20250717
  Serious: No
  Sender: MYLAN
  Company Number: US-MYLANLABS-2025M1040802

PATIENT

DRUGS (1)
  1. TYRVAYA [Suspect]
     Active Substance: VARENICLINE TARTRATE
     Indication: Product used for unknown indication

REACTIONS (5)
  - Dizziness [Unknown]
  - Nervousness [Unknown]
  - Headache [Unknown]
  - Intentional product misuse [Unknown]
  - Therapeutic response unexpected [Unknown]
